FAERS Safety Report 7521944-8 (Version None)
Quarter: 2011Q2

REPORT INFORMATION
  Report Type: 
  Country: None (occurrence: None)
  Receive Date: 20110603
  Receipt Date: 20110520
  Transmission Date: 20111010
  Serious: Yes (Hospitalization)
  Sender: FDA-Public Use
  Company Number: US-ELI_LILLY_AND_COMPANY-US201102006439

PATIENT
  Sex: Female

DRUGS (16)
  1. PLAVIX [Concomitant]
  2. LORTAB [Concomitant]
     Dosage: UNK, PRN
  3. FORTEO [Suspect]
     Indication: OSTEOPOROSIS
     Dosage: 20 UG, DAILY (1/D)
     Route: 058
     Dates: start: 20110127
  4. WELLBUTRIN SR [Concomitant]
  5. MULTI-VITAMIN [Concomitant]
  6. ZOLOFT [Concomitant]
  7. LIPITOR [Concomitant]
  8. FORTEO [Suspect]
     Dosage: 20 UG, QD
     Route: 058
  9. FORTEO [Suspect]
     Dosage: 20 UG, QD
     Route: 058
  10. TENORMIN [Concomitant]
  11. CALCIUM CITRATE [Concomitant]
  12. FORTEO [Suspect]
     Dosage: 20 UG, DAILY (1/D)
     Route: 058
  13. NEURONTIN [Concomitant]
  14. SYNTHROID [Concomitant]
     Indication: THYROID DISORDER
  15. ASPIRIN [Concomitant]
  16. BUSPAR [Concomitant]

REACTIONS (18)
  - IRRITABILITY [None]
  - COUGH [None]
  - MOVEMENT DISORDER [None]
  - FACIAL PAIN [None]
  - CONTUSION [None]
  - HEAD INJURY [None]
  - EYE INJURY [None]
  - PAIN [None]
  - CONSTIPATION [None]
  - BONE PAIN [None]
  - DRUG DOSE OMISSION [None]
  - FALL [None]
  - FATIGUE [None]
  - MUSCLE SPASMS [None]
  - SENSATION OF HEAVINESS [None]
  - INITIAL INSOMNIA [None]
  - MUSCULOSKELETAL CHEST PAIN [None]
  - INSOMNIA [None]
